FAERS Safety Report 6172585-9 (Version None)
Quarter: 2009Q2

REPORT INFORMATION
  Report Type: 
  Country: None (occurrence: None)
  Receive Date: 20090428
  Receipt Date: 20090423
  Transmission Date: 20091009
  Serious: Yes (Other)
  Sender: FDA-Public Use
  Company Number: A0780267A

PATIENT
  Age: 53 Year
  Sex: Female

DRUGS (1)
  1. METHYLCELLULOSE (FORMULATION UNKNOWN) (METHYLCELLULOSE) [Suspect]

REACTIONS (8)
  - CHOKING SENSATION [None]
  - DYSPHAGIA [None]
  - DYSPNOEA [None]
  - HYPERSENSITIVITY [None]
  - MIDDLE INSOMNIA [None]
  - PHARYNGEAL OEDEMA [None]
  - SPEECH DISORDER [None]
  - TREATMENT NONCOMPLIANCE [None]
